FAERS Safety Report 15403085 (Version 2)
Quarter: 2020Q3

REPORT INFORMATION
  Report Type: Spontaneous
  Country: DO (occurrence: DO)
  Receive Date: 20180919
  Receipt Date: 20181019
  Transmission Date: 20201104
  Serious: Yes (Hospitalization, Other)
  Sender: FDA-Public Use
  Company Number: IND-DO-009507513-1809DOM005547

PATIENT
  Age: 60 Year
  Sex: Female

DRUGS (1)
  1. ARCOXIA [Suspect]
     Active Substance: ETORICOXIB
     Dosage: 120 MG, QD (ONCE A DAY FOR 7 DAYS)
     Route: 048
     Dates: start: 20180911, end: 20180911

REACTIONS (1)
  - Drug hypersensitivity [Recovered/Resolved]

NARRATIVE: CASE EVENT DATE: 20180911
